FAERS Safety Report 7471455-3 (Version None)
Quarter: 2011Q2

REPORT INFORMATION
  Report Type: 
  Country: None (occurrence: None)
  Receive Date: 20110511
  Receipt Date: 20110504
  Transmission Date: 20111010
  Serious: Yes (Other)
  Sender: FDA-Public Use
  Company Number: NZ-BIOGENIDEC-2011BI009747

PATIENT
  Age: 56 Year
  Sex: Female

DRUGS (1)
  1. AVONEX [Suspect]
     Indication: MULTIPLE SCLEROSIS
     Dates: start: 20110304

REACTIONS (3)
  - BRADYCARDIA [None]
  - HYPOTENSION [None]
  - ADVERSE DRUG REACTION [None]
